FAERS Safety Report 11721406 (Version 1)
Quarter: 2015Q4

REPORT INFORMATION
  Report Type: Spontaneous
  Country: CA (occurrence: CA)
  Receive Date: 20151111
  Receipt Date: 20151111
  Transmission Date: 20160304
  Serious: Yes (Other)
  Sender: FDA-Public Use
  Company Number: CA-009507513-1511CAN001711

PATIENT
  Age: 38 Year
  Sex: Male

DRUGS (3)
  1. RALTEGRAVIR POTASSIUM [Suspect]
     Active Substance: RALTEGRAVIR POTASSIUM
     Indication: ANTIRETROVIRAL THERAPY
     Route: 048
  2. TENOFOVIR [Suspect]
     Active Substance: TENOFOVIR
     Indication: ANTIRETROVIRAL THERAPY
  3. EMTRICITABINE [Suspect]
     Active Substance: EMTRICITABINE
     Indication: ANTIRETROVIRAL THERAPY

REACTIONS (1)
  - Kaposi^s sarcoma [Recovered/Resolved]

NARRATIVE: CASE EVENT DATE: 2008
